FAERS Safety Report 8296237-4 (Version None)
Quarter: 2012Q2

REPORT INFORMATION
  Report Type: 
  Country: None (occurrence: None)
  Receive Date: 20120418
  Receipt Date: 20120402
  Transmission Date: 20120825
  Serious: Yes (Other)
  Sender: FDA-Public Use
  Company Number: CHPA2012US007122

PATIENT
  Sex: Male

DRUGS (5)
  1. CHEMOTHERAPEUTICS [Suspect]
     Indication: COLON CANCER
     Dosage: UNK, UNK
     Route: 042
     Dates: start: 20090101, end: 20100101
  2. FERROUS SULFATE TAB [Suspect]
     Dosage: 2 DF, QD
     Route: 048
     Dates: start: 20120201
  3. FERROUS SULFATE TAB [Suspect]
     Indication: ANAEMIA
     Dosage: 1 DF, QD
     Route: 048
     Dates: start: 20090801, end: 20120101
  4. FERROUS SULFATE TAB [Suspect]
     Dosage: 3 DF, QD
     Route: 048
     Dates: start: 20120101, end: 20120201
  5. ASCORBIC ACID [Concomitant]
     Indication: SUPPLEMENTATION THERAPY
     Dosage: UNK, UNK

REACTIONS (4)
  - CORONARY ARTERY OCCLUSION [None]
  - RED BLOOD CELL COUNT DECREASED [None]
  - FATIGUE [None]
  - COLON CANCER [None]
